FAERS Safety Report 17297925 (Version 2)
Quarter: 2020Q1

REPORT INFORMATION
  Report Type: Report from Study
  Country: IT (occurrence: IT)
  Receive Date: 20200122
  Receipt Date: 20200205
  Transmission Date: 20200409
  Serious: Yes (Hospitalization)
  Sender: FDA-Public Use
  Company Number: IT-TEVA-2020-IT-1171292

PATIENT
  Age: 79 Year
  Sex: Female

DRUGS (16)
  1. RAMIPRIL. [Suspect]
     Active Substance: RAMIPRIL
     Indication: DRUG ABUSE
     Dosage: 10 MG
     Route: 048
     Dates: start: 20191124, end: 20191124
  2. VASEXTEN 20 MG CAPSULE A RILASCIO MODIFICATO [Suspect]
     Active Substance: BARNIDIPINE HYDROCHLORIDE
     Indication: DRUG ABUSE
     Dosage: 40 MG
     Route: 048
     Dates: start: 20191124, end: 20191124
  3. ALLOPURINOL. [Suspect]
     Active Substance: ALLOPURINOL
     Indication: DRUG ABUSE
     Dosage: 2 DOSAGE FORMS
     Route: 048
     Dates: start: 20191124, end: 20191124
  4. FERRO-GRAD [Suspect]
     Active Substance: FERROUS SULFATE
     Indication: DRUG ABUSE
     Dosage: 210 MG
     Route: 048
     Dates: start: 20191124, end: 20191124
  5. ACETYLSALICYLIC ACID [Suspect]
     Active Substance: ASPIRIN
     Indication: DRUG ABUSE
     Dosage: 200 MG
     Route: 048
     Dates: start: 20191124, end: 20191124
  6. BISOPROLOL 5MG [Concomitant]
     Dosage: 1 DOSAGE FORMS
  7. RAMIPRIL 5MG [Concomitant]
     Active Substance: RAMIPRIL
  8. FUROSEMIDE 25MG [Concomitant]
     Dosage: 1 TABLET AT 8:00 AND ONE AT 16:00
  9. LASIX [Suspect]
     Active Substance: FUROSEMIDE
     Indication: DRUG ABUSE
     Dosage: 100 MG
     Route: 048
     Dates: start: 20191124, end: 20191124
  10. METFORMIN [Suspect]
     Active Substance: METFORMIN HYDROCHLORIDE
     Indication: DRUG ABUSE
     Dosage: 10 GM
     Route: 048
     Dates: start: 20191124, end: 20191124
  11. BISOPROLOL HEMIFUMARATE [Suspect]
     Active Substance: BISOPROLOL FUMARATE
     Indication: DRUG ABUSE
     Dosage: 10 MG
     Route: 048
     Dates: start: 20191124, end: 20191124
  12. LUVION 50 MG COMPRESSE [Suspect]
     Active Substance: CANRENONE
     Indication: DRUG ABUSE
     Dosage: 100 MG
     Route: 048
     Dates: start: 20191124, end: 20191124
  13. ACETYLSALYCILIC ACID [Concomitant]
  14. CANRENONE 50MG [Concomitant]
  15. VENLAFAXINE [Suspect]
     Active Substance: VENLAFAXINE HYDROCHLORIDE
     Indication: DRUG ABUSE
     Dosage: 2 DOSAGE FORMS
     Route: 048
     Dates: start: 20191124, end: 20191124
  16. PREGABALIN. [Suspect]
     Active Substance: PREGABALIN
     Indication: DRUG ABUSE
     Dosage: 2 DOSAGE FORMS
     Route: 048
     Dates: start: 20191124, end: 20191124

REACTIONS (3)
  - Lactic acidosis [Recovering/Resolving]
  - Sopor [Recovering/Resolving]
  - Drug abuse [Recovering/Resolving]

NARRATIVE: CASE EVENT DATE: 20191124
